FAERS Safety Report 24191953 (Version 3)
Quarter: 2024Q4

REPORT INFORMATION
  Report Type: Report from Study
  Country: US (occurrence: US)
  Receive Date: 20240809
  Receipt Date: 20241003
  Transmission Date: 20250115
  Serious: Yes (Other)
  Sender: ACADIA PHARMACEUTICALS
  Company Number: US-ACADIA PHARMACEUTICALS INC.-ACA-2024-TRF-003632

PATIENT
  Sex: Female

DRUGS (1)
  1. DAYBUE [Suspect]
     Active Substance: TROFINETIDE
     Indication: Rett syndrome
     Dosage: 40 MILLILITER, BID
     Route: 048

REACTIONS (5)
  - Electrocardiogram QT interval abnormal [Not Recovered/Not Resolved]
  - Product use complaint [Not Recovered/Not Resolved]
  - Sinusitis [Not Recovered/Not Resolved]
  - Insomnia [Not Recovered/Not Resolved]
  - Drooling [Not Recovered/Not Resolved]
